FAERS Safety Report 10736824 (Version 1)
Quarter: 2015Q1

REPORT INFORMATION
  Report Type: Spontaneous
  Country: US (occurrence: None)
  Receive Date: 20150112
  Receipt Date: 20150112
  Transmission Date: 20150721
  Serious: Yes (Death)
  Sender: FDA-Public Use
  Company Number: 1426537

PATIENT
  Age: 89 Year
  Sex: Male

DRUGS (4)
  1. DILTIAZEM [Concomitant]
     Active Substance: DILTIAZEM
  2. LISINOPRIL. [Concomitant]
     Active Substance: LISINOPRIL
  3. ACTILYSE (ALTEPLASE) (INFUSION, SOLUTION) [Suspect]
     Active Substance: ALTEPLASE
     Indication: CEREBROVASCULAR ACCIDENT
     Route: 040
     Dates: start: 20140409
  4. ASPIRIN. [Concomitant]
     Active Substance: ASPIRIN

REACTIONS (1)
  - Haemorrhagic infarction [None]

NARRATIVE: CASE EVENT DATE: 20140409
